FAERS Safety Report 12740808 (Version 1)
Quarter: 2016Q3

REPORT INFORMATION
  Report Type: Spontaneous
  Country: US (occurrence: US)
  Receive Date: 20160914
  Receipt Date: 20160914
  Transmission Date: 20161109
  Serious: No
  Sender: FDA-Public Use
  Company Number: US-TEVA-585592USA

PATIENT
  Sex: Female
  Weight: 63.56 kg

DRUGS (1)
  1. FLUOXETINE [Suspect]
     Active Substance: FLUOXETINE HYDROCHLORIDE
     Indication: DEPRESSION
     Dates: start: 1990

REACTIONS (5)
  - Tongue discolouration [Unknown]
  - Dry mouth [Unknown]
  - Tongue discomfort [Unknown]
  - Paraesthesia oral [Unknown]
  - Buccal mucosal roughening [Unknown]
